FAERS Safety Report 11519888 (Version 1)
Quarter: 2015Q3

REPORT INFORMATION
  Report Type: Spontaneous
  Country: US (occurrence: None)
  Receive Date: 20150917
  Receipt Date: 20150917
  Transmission Date: 20151125
  Serious: Yes (Other)
  Sender: FDA-Public Use
  Company Number: None

PATIENT
  Age: 59 Year
  Sex: Female
  Weight: 200 kg

DRUGS (3)
  1. ZOLOFT [Concomitant]
     Active Substance: SERTRALINE HYDROCHLORIDE
  2. FLUTICASONE PROPINAE APOTEX CORP. [Suspect]
     Active Substance: FLUTICASONE PROPIONATE
     Indication: MULTIPLE ALLERGIES
     Dosage: 2 PUFFS, THROUGH NOSE
     Dates: start: 20150826, end: 20150831
  3. KLONIPINE [Concomitant]
     Active Substance: CLONAZEPAM

REACTIONS (3)
  - Productive cough [None]
  - Dyspnoea [None]
  - Oropharyngeal pain [None]

NARRATIVE: CASE EVENT DATE: 20150826
